FAERS Safety Report 18871642 (Version 1)
Quarter: 2021Q1

REPORT INFORMATION
  Report Type: Spontaneous
  Country: US (occurrence: US)
  Receive Date: 20210209
  Receipt Date: 20210209
  Transmission Date: 20210420
  Serious: Yes (Hospitalization)
  Sender: FDA-Public Use
  Company Number: None

PATIENT
  Age: 71 Year
  Sex: Female

DRUGS (2)
  1. ERTAPENEM SODIUM [Suspect]
     Active Substance: ERTAPENEM SODIUM
     Indication: SEPSIS
     Dosage: ?          OTHER FREQUENCY:Q24H;?
     Route: 042
     Dates: start: 20210202, end: 202102
  2. ERTAPENEM SODIUM [Suspect]
     Active Substance: ERTAPENEM SODIUM
     Indication: URINARY TRACT INFECTION
     Dosage: ?          OTHER FREQUENCY:Q24H;?
     Route: 042
     Dates: start: 20210202, end: 202102

REACTIONS (1)
  - Seizure [None]

NARRATIVE: CASE EVENT DATE: 20210205
